FAERS Safety Report 5047469-X (Version None)
Quarter: 2006Q3

REPORT INFORMATION
  Report Type: 
  Country: None (occurrence: None)
  Receive Date: 20060703
  Receipt Date: 20060622
  Transmission Date: 20061208
  Serious: Yes (Hospitalization)
  Sender: FDA-Public Use
  Company Number: 233677K06USA

PATIENT
  Age: 50 Year
  Sex: Female

DRUGS (6)
  1. REBIF [Suspect]
     Indication: MULTIPLE SCLEROSIS
     Dosage: SEE IMAGE, SUBCUTANEOUS
     Route: 058
     Dates: start: 20051117, end: 20051117
  2. REBIF [Suspect]
     Indication: MULTIPLE SCLEROSIS
     Dosage: SEE IMAGE, SUBCUTANEOUS
     Route: 058
     Dates: start: 20051209, end: 20051226
  3. REBIF [Suspect]
     Indication: MULTIPLE SCLEROSIS
     Dosage: SEE IMAGE, SUBCUTANEOUS
     Route: 058
     Dates: start: 20051226, end: 20060101
  4. REBIF [Suspect]
     Indication: MULTIPLE SCLEROSIS
     Dosage: SEE IMAGE, SUBCUTANEOUS
     Route: 058
     Dates: start: 20060217, end: 20060302
  5. REBIF [Suspect]
     Indication: MULTIPLE SCLEROSIS
     Dosage: SEE IMAGE, SUBCUTANEOUS
     Route: 058
     Dates: start: 20060303, end: 20060601
  6. AVALIDE (KARVEA HCT) [Concomitant]

REACTIONS (15)
  - CHEST DISCOMFORT [None]
  - CHEST PAIN [None]
  - CONDITION AGGRAVATED [None]
  - DYSPNOEA [None]
  - FALL [None]
  - FOOT FRACTURE [None]
  - HEADACHE [None]
  - HYPERHIDROSIS [None]
  - HYPERSENSITIVITY [None]
  - HYPOAESTHESIA FACIAL [None]
  - INFLUENZA LIKE ILLNESS [None]
  - LIVER FUNCTION TEST ABNORMAL [None]
  - MOUTH BREATHING [None]
  - MULTIPLE SCLEROSIS [None]
  - NASAL CONGESTION [None]
